FAERS Safety Report 7739437 (Version 4)
Quarter: 2015Q1

REPORT INFORMATION
  Report Type: Spontaneous
  Country: DK (occurrence: DK)
  Receive Date: 20101224
  Receipt Date: 20150325
  Transmission Date: 20150721
  Serious: Yes (Other)
  Sender: FDA-Public Use
  Company Number: PHHY2010DK86317

PATIENT
  Age: 53 Year
  Sex: Male
  Weight: 74 kg

DRUGS (9)
  1. ZOMETA [Suspect]
     Active Substance: ZOLEDRONIC ACID
     Indication: OSTEOPOROSIS
     Dosage: 4 MG, PER 100MI NACL
     Route: 041
     Dates: start: 20031016
  2. FOSAMAX [Concomitant]
     Active Substance: ALENDRONATE SODIUM
     Indication: OSTEOPOROSIS
     Route: 048
     Dates: start: 20060410, end: 20070510
  3. FORSTEO [Concomitant]
     Active Substance: TERIPARATIDE
     Indication: OSTEOPOROSIS
     Dosage: 20 MIKROG/80 MIKROL
     Route: 065
     Dates: start: 200409, end: 200604
  4. NATRIUMFLUORID [Concomitant]
     Indication: PRODUCT USED FOR UNKNOWN INDICATION
     Route: 065
     Dates: start: 200206, end: 200310
  5. CALCIFEROL [Concomitant]
     Active Substance: ERGOCALCIFEROL
     Indication: PRODUCT USED FOR UNKNOWN INDICATION
     Route: 065
     Dates: start: 200206, end: 200310
  6. ZOMETA [Suspect]
     Active Substance: ZOLEDRONIC ACID
     Indication: OFF LABEL USE
     Dosage: 4 MG, PER 100MI NACL
     Route: 041
     Dates: start: 20040114, end: 20040715
  7. SODIUM FLUORIDE. [Concomitant]
     Active Substance: SODIUM FLUORIDE
     Indication: PRODUCT USED FOR UNKNOWN INDICATION
     Dosage: UNK
     Route: 065
     Dates: start: 200206, end: 200310
  8. GLUCOSAMINE [Concomitant]
     Active Substance: GLUCOSAMINE
     Indication: TOOTHACHE
     Route: 065
  9. DIDRONATE [Suspect]
     Active Substance: ETIDRONATE DISODIUM
     Indication: OSTEOPOROSIS
     Dosage: 400 MG X1, FOR 2 WEEK AT AN INTERVAL OF 11 WEEKS
     Route: 048
     Dates: start: 20010410

REACTIONS (10)
  - Osteitis [Recovered/Resolved]
  - Bone fragmentation [Recovered/Resolved]
  - Wound necrosis [Recovered/Resolved]
  - Impaired healing [Recovered/Resolved]
  - Decreased activity [Not Recovered/Not Resolved]
  - Hypophagia [Not Recovered/Not Resolved]
  - Exposed bone in jaw [Recovered/Resolved]
  - Osteonecrosis of jaw [Recovered/Resolved]
  - Tooth loss [Not Recovered/Not Resolved]
  - Neuralgia [Not Recovered/Not Resolved]

NARRATIVE: CASE EVENT DATE: 20031024
